FAERS Safety Report 17825821 (Version 3)
Quarter: 2020Q3

REPORT INFORMATION
  Report Type: Spontaneous
  Country: US (occurrence: US)
  Receive Date: 20200526
  Receipt Date: 20200903
  Transmission Date: 20201102
  Serious: Yes (Disabling, Other)
  Sender: FDA-Public Use
  Company Number: US-PFIZER INC-2020205557

PATIENT
  Age: 41 Year
  Sex: Female

DRUGS (1)
  1. LYRICA [Suspect]
     Active Substance: PREGABALIN
     Dosage: UNK

REACTIONS (8)
  - Limb traumatic amputation [Unknown]
  - Gait disturbance [Unknown]
  - Dysphonia [Unknown]
  - Neuropathy peripheral [Unknown]
  - Pain [Unknown]
  - Epilepsy [Unknown]
  - Foot fracture [Unknown]
  - Hypoaesthesia [Unknown]
